FAERS Safety Report 7593953-4 (Version None)
Quarter: 2011Q3

REPORT INFORMATION
  Report Type: 
  Country: None (occurrence: None)
  Receive Date: 20110706
  Receipt Date: 20110628
  Transmission Date: 20111222
  Serious: Yes (Hospitalization, Other)
  Sender: FDA-Public Use
  Company Number: US-AMGEN-USASP2011033115

PATIENT

DRUGS (1)
  1. ARANESP [Suspect]
     Indication: RENAL FAILURE CHRONIC
     Dosage: UNK

REACTIONS (5)
  - PYREXIA [None]
  - RENAL FAILURE CHRONIC [None]
  - HAEMOGLOBIN INCREASED [None]
  - MYELODYSPLASTIC SYNDROME [None]
  - ATRIAL FIBRILLATION [None]
